FAERS Safety Report 6710946-7 (Version None)
Quarter: 2010Q2

REPORT INFORMATION
  Report Type: 
  Country: None (occurrence: None)
  Receive Date: 20100505
  Receipt Date: 20100426
  Transmission Date: 20101027
  Serious: No
  Sender: FDA-Public Use
  Company Number: US-BIOGENIDEC-2010BI014322

PATIENT
  Age: 53 Year
  Sex: Female

DRUGS (2)
  1. AVONEX [Suspect]
     Indication: MULTIPLE SCLEROSIS
     Route: 030
  2. FOSAMAX [Concomitant]
     Dates: start: 20080101, end: 20100301

REACTIONS (2)
  - BONE DENSITY DECREASED [None]
  - INFLUENZA LIKE ILLNESS [None]
